FAERS Safety Report 6231970-7 (Version None)
Quarter: 2009Q2

REPORT INFORMATION
  Report Type: 
  Country: None (occurrence: None)
  Receive Date: 20090616
  Receipt Date: 20090609
  Transmission Date: 20091009
  Serious: Yes (Death)
  Sender: FDA-Public Use
  Company Number: JP-GENENTECH-282133

PATIENT
  Sex: Female

DRUGS (10)
  1. RITUXAN [Suspect]
     Indication: EPSTEIN-BARR VIRUS INFECTION
     Dosage: 330 MG, SINGLE
     Route: 042
     Dates: start: 20090328
  2. ALKERAN [Concomitant]
     Indication: PROPHYLAXIS AGAINST TRANSPLANT REJECTION
     Dosage: 60 MG, QD
     Route: 065
     Dates: start: 20090214
  3. THYMOGLOBULIN [Concomitant]
     Indication: PROPHYLAXIS AGAINST TRANSPLANT REJECTION
  4. DECADRON [Concomitant]
     Indication: PROPHYLAXIS
     Dosage: 4 MG, QD
     Route: 065
     Dates: start: 20090212
  5. ATARAX [Concomitant]
     Indication: PROPHYLAXIS
     Dosage: 12.5 MG, QD
     Route: 065
     Dates: start: 20090214
  6. CARBENIN [Concomitant]
     Indication: PYREXIA
     Dosage: 2000 UNK, QD
     Route: 065
     Dates: start: 20090513
  7. CARBENIN [Concomitant]
     Indication: C-REACTIVE PROTEIN INCREASED
  8. TOBRACIN [Concomitant]
     Indication: PYREXIA
     Dosage: 80 UNK, QD
     Dates: start: 20090213
  9. TOBRACIN [Concomitant]
     Indication: C-REACTIVE PROTEIN INCREASED
  10. ZOVIRAX [Concomitant]
     Indication: PROPHYLAXIS
     Dosage: 360 UNK, QD
     Route: 042
     Dates: start: 20090213

REACTIONS (1)
  - MULTI-ORGAN FAILURE [None]
